FAERS Safety Report 9356806 (Version 2)
Quarter: 2013Q2

REPORT INFORMATION
  Report Type: Report from Study
  Country: BE (occurrence: BE)
  Receive Date: 20130619
  Receipt Date: 20130627
  Transmission Date: 20140414
  Serious: Yes (Other)
  Sender: FDA-Public Use
  Company Number: BE-009507513-1306BEL006837

PATIENT
  Sex: 0

DRUGS (11)
  1. RIBAVIRIN [Suspect]
     Indication: HEPATITIS C
     Dosage: 600 MG/DAY  AT WEEK 0
     Route: 048
  2. RIBAVIRIN [Suspect]
     Dosage: 600 MG/DAY  AT WEEK 4
     Route: 048
  3. RIBAVIRIN [Suspect]
     Dosage: 600 MG/DAY  AT WEEK 8
     Route: 048
  4. RIBAVIRIN [Suspect]
     Dosage: 400 MG/DAY  AT WEEK 16
     Route: 048
  5. BOCEPREVIR [Suspect]
     Indication: HEPATITIS C
     Route: 048
  6. PEGINTERFERON ALFA-2A [Suspect]
     Indication: HEPATITIS C
  7. CYCLOSPORINE [Concomitant]
     Indication: PROPHYLAXIS AGAINST TRANSPLANT REJECTION
     Dosage: 150 MG/DAY  AT WEEK 0
  8. CYCLOSPORINE [Concomitant]
     Dosage: 50 MG/DAY  AT WEEK 4
  9. CYCLOSPORINE [Concomitant]
     Dosage: 75 MG/DAY  AT WEEK 8
  10. CYCLOSPORINE [Concomitant]
     Dosage: 75 MG/DAY  AT WEEK 16
  11. MYCOPHENOLATE MOFETIL [Concomitant]
     Indication: PROPHYLAXIS AGAINST TRANSPLANT REJECTION

REACTIONS (1)
  - Anaemia [Not Recovered/Not Resolved]
